FAERS Safety Report 6243775-1 (Version None)
Quarter: 2009Q2

REPORT INFORMATION
  Report Type: 
  Country: None (occurrence: None)
  Receive Date: 20090619
  Receipt Date: 20090120
  Transmission Date: 20091009
  Serious: Yes (Hospitalization)
  Sender: FDA-Public Use
  Company Number: 2009PL000076

PATIENT
  Age: 66 Year
  Sex: Female
  Weight: 48.5 kg

DRUGS (9)
  1. AZATHIOPRINE [Suspect]
     Indication: CROHN'S DISEASE
     Dosage: 100 MG;QD
     Dates: start: 20051221, end: 20051222
  2. PLACEBO (PLACEBO) LYOPHILIZED POWDER (NO PREF. NAME) [Suspect]
     Indication: CROHN'S DISEASE
     Dosage: 24 ML;QD;IV
     Route: 042
     Dates: start: 20051221, end: 20060104
  3. MULTI-VITAMINS [Concomitant]
  4. OMEPRAZOLE [Concomitant]
  5. BUSCOPAN /00008702/ [Concomitant]
  6. CODEINE PHOSPHATE [Concomitant]
  7. MESALAZINE [Concomitant]
  8. WARFARIN SODIUM [Concomitant]
  9. MEBEVERINE [Concomitant]

REACTIONS (2)
  - CROHN'S DISEASE [None]
  - LIVER FUNCTION TEST ABNORMAL [None]
